FAERS Safety Report 4364988-X (Version None)
Quarter: 2004Q2

REPORT INFORMATION
  Report Type: 
  Country: None (occurrence: None)
  Receive Date: 20040521
  Receipt Date: 20040503
  Transmission Date: 20050107
  Serious: Yes (Hospitalization)
  Sender: FDA-Public Use
  Company Number: DE_040513525

PATIENT
  Age: 53 Year
  Sex: Female

DRUGS (4)
  1. GEMZAR [Suspect]
     Indication: OVARIAN CANCER
     Dosage: 1000 MG/M2
     Dates: start: 20010101
  2. OXALIPLATIN [Concomitant]
  3. VOLTAREN [Concomitant]
  4. NOVALDIN INJ [Concomitant]

REACTIONS (10)
  - CRYING [None]
  - DIZZINESS [None]
  - ENCEPHALOPATHY [None]
  - FATIGUE [None]
  - FEELING ABNORMAL [None]
  - HYPERTENSION [None]
  - LABORATORY TEST ABNORMAL [None]
  - MENINGITIS [None]
  - NAUSEA [None]
  - PROTEIN TOTAL INCREASED [None]
